FAERS Safety Report 11661937 (Version 1)
Quarter: 2015Q4

REPORT INFORMATION
  Report Type: Other
  Country: US (occurrence: US)
  Receive Date: 20151026
  Receipt Date: 20151026
  Transmission Date: 20160304
  Serious: Yes (Hospitalization)
  Sender: FDA-Public Use
  Company Number: US-CUMBERLAND PHARMACEUTICALS INC.-1043416

PATIENT
  Age: 26 Year
  Sex: Male

DRUGS (1)
  1. ACETADOTE [Suspect]
     Active Substance: ACETYLCYSTEINE
     Route: 042

REACTIONS (6)
  - Pain in extremity [Recovering/Resolving]
  - Infection [Recovering/Resolving]
  - Sensory loss [Recovering/Resolving]
  - Compartment syndrome [Recovering/Resolving]
  - Paraesthesia [Recovering/Resolving]
  - Extravasation [Recovering/Resolving]

NARRATIVE: CASE EVENT DATE: 2015
